FAERS Safety Report 4905648-3 (Version None)
Quarter: 2006Q1

REPORT INFORMATION
  Report Type: 
  Country: None (occurrence: None)
  Receive Date: 20060203
  Receipt Date: 20060127
  Transmission Date: 20060701
  Serious: Yes (Hospitalization)
  Sender: FDA-Public Use
  Company Number: S05-USA-02350-01

PATIENT
  Age: 57 Year
  Sex: Female
  Weight: 129.7287 kg

DRUGS (13)
  1. TIAZAC [Suspect]
     Indication: HYPERTENSION
     Dosage: 300 MG QD PO
     Route: 048
     Dates: start: 20030311
  2. AVELOX [Suspect]
     Indication: RESPIRATORY TRACT INFECTION
     Dosage: 400 MG
     Dates: start: 20050301, end: 20050301
  3. COUMADIN [Suspect]
     Indication: ANTICOAGULANT THERAPY
  4. NASONEX [Concomitant]
  5. ESTRACE [Concomitant]
  6. LIPITOR [Concomitant]
  7. NASACORT [Concomitant]
  8. NAPROSYN [Concomitant]
  9. LASIX [Concomitant]
  10. TOPROL-XL [Concomitant]
  11. LISINOPRIL [Concomitant]
  12. HUMIBID LA (GUAIFENESIN) [Concomitant]
  13. COMBIVENT                 (IPRATROPIUM/ALBUTEROL) [Concomitant]

REACTIONS (7)
  - ABDOMINAL HAEMATOMA [None]
  - ABDOMINAL PAIN [None]
  - ANAEMIA [None]
  - BRONCHITIS ACUTE [None]
  - DRUG INTERACTION [None]
  - HYPOTENSION [None]
  - INTERNATIONAL NORMALISED RATIO INCREASED [None]
